FAERS Safety Report 14673041 (Version 1)
Quarter: 2018Q1

REPORT INFORMATION
  Report Type: Spontaneous
  Country: SE (occurrence: SE)
  Receive Date: 20180323
  Receipt Date: 20180323
  Transmission Date: 20180509
  Serious: Yes (Disabling, Other)
  Sender: FDA-Public Use
  Company Number: SE-CONCORDIA PHARMACEUTICALS INC.-E2B_00010641

PATIENT
  Age: 72 Year
  Sex: Male

DRUGS (10)
  1. PREDNISOLONE. [Suspect]
     Active Substance: PREDNISOLONE
     Indication: POLYMYALGIA RHEUMATICA
     Route: 048
     Dates: start: 20160623
  2. KALCIPOS-DFORTE [Concomitant]
  3. BEVIPLEX? FORTE [Concomitant]
  4. FINASTERID [Concomitant]
     Active Substance: FINASTERIDE
  5. METOPROLOL. [Concomitant]
     Active Substance: METOPROLOL
  6. DOXAZOSIN [Suspect]
     Active Substance: DOXAZOSIN\DOXAZOSIN MESYLATE
     Indication: PROSTATOMEGALY
     Route: 048
     Dates: start: 20160310
  7. ALEDRONAT [Concomitant]
     Dates: start: 20160707, end: 20170202
  8. OMEPRAZOL [Concomitant]
     Active Substance: OMEPRAZOLE
  9. LEVAXIN [Concomitant]
     Active Substance: LEVOTHYROXINE SODIUM
  10. EMGESAN [Concomitant]

REACTIONS (11)
  - Skin fragility [Not Recovered/Not Resolved]
  - Tendon rupture [Not Recovered/Not Resolved]
  - Skin discolouration [Not Recovered/Not Resolved]
  - Dry mouth [Not Recovered/Not Resolved]
  - Oral fungal infection [Not Recovered/Not Resolved]
  - Throat irritation [Not Recovered/Not Resolved]
  - Dysgeusia [Not Recovered/Not Resolved]
  - Dry eye [Not Recovered/Not Resolved]
  - Tooth erosion [Not Recovered/Not Resolved]
  - Dental caries [Not Recovered/Not Resolved]
  - Skin ulcer [Not Recovered/Not Resolved]

NARRATIVE: CASE EVENT DATE: 2016
